FAERS Safety Report 20338936 (Version 1)
Quarter: 2022Q1

REPORT INFORMATION
  Report Type: Spontaneous
  Country: SK (occurrence: SK)
  Receive Date: 20220116
  Receipt Date: 20220116
  Transmission Date: 20220424
  Serious: Yes (Hospitalization, Other)
  Sender: FDA-Public Use
  Company Number: SK-BAYER-2022A005482

PATIENT
  Age: 83 Year
  Sex: Female

DRUGS (1)
  1. XARELTO [Suspect]
     Active Substance: RIVAROXABAN
     Indication: Anticoagulant therapy
     Route: 048

REACTIONS (5)
  - Arterial rupture [Unknown]
  - Anaemia [Unknown]
  - Abdominal wall haemorrhage [Recovered/Resolved]
  - Abdominal wall haematoma [Unknown]
  - Peritoneal haematoma [Unknown]
